FAERS Safety Report 5255585-2 (Version None)
Quarter: 2007Q1

REPORT INFORMATION
  Report Type: 
  Country: None (occurrence: None)
  Receive Date: 20070305
  Receipt Date: 20070226
  Transmission Date: 20070707
  Serious: Yes (Death)
  Sender: FDA-Public Use
  Company Number: DE-ROXANE LABORATORIES, INC-2007-BP-02708RO

PATIENT
  Age: 9 Year
  Sex: Female

DRUGS (2)
  1. METHOTREXATE [Suspect]
     Indication: MEDULLOBLASTOMA
     Route: 037
  2. METHOTREXATE [Suspect]
     Route: 042

REACTIONS (2)
  - MALIGNANT GLIOMA [None]
  - METASTASIS [None]
